FAERS Safety Report 5625851-7 (Version None)
Quarter: 2008Q1

REPORT INFORMATION
  Report Type: 
  Country: None (occurrence: None)
  Receive Date: 20080213
  Receipt Date: 20080213
  Transmission Date: 20080703
  Serious: Yes (Death)
  Sender: FDA-Public Use
  Company Number: None

PATIENT
  Age: 83 Year
  Sex: Female
  Weight: 72.5755 kg

DRUGS (1)
  1. HEPARIN [Suspect]
     Indication: DIALYSIS
     Dates: start: 20071201, end: 20071209

REACTIONS (5)
  - ABDOMINAL PAIN UPPER [None]
  - BLOOD DISORDER [None]
  - CONFUSIONAL STATE [None]
  - INFECTION [None]
  - SCREAMING [None]
